FAERS Safety Report 10634324 (Version 7)
Quarter: 2015Q3

REPORT INFORMATION
  Report Type: Spontaneous
  Country: US (occurrence: US)
  Receive Date: 20141205
  Receipt Date: 20150810
  Transmission Date: 20151125
  Serious: Yes (Death, Hospitalization, Other)
  Sender: FDA-Public Use
  Company Number: US-ASTELLAS-2014US015127

PATIENT
  Age: 77 Year
  Sex: Male

DRUGS (3)
  1. XTANDI [Suspect]
     Active Substance: ENZALUTAMIDE
     Indication: PROSTATE CANCER
     Route: 048
     Dates: start: 20140726
  2. MEGESTROL [Concomitant]
     Active Substance: MEGESTROL
     Indication: PRODUCT USED FOR UNKNOWN INDICATION
     Dosage: UNK UNK, UNKNOWN FREQ.
     Route: 065
  3. XTANDI [Suspect]
     Active Substance: ENZALUTAMIDE
     Route: 065

REACTIONS (10)
  - Death [Fatal]
  - Gastrointestinal disorder [Unknown]
  - Adverse drug reaction [Unknown]
  - Abscess intestinal [Unknown]
  - Urinary tract infection [Unknown]
  - Heart rate increased [Unknown]
  - Back disorder [Unknown]
  - Surgery [Recovering/Resolving]
  - Infection [Unknown]
  - Underdose [Unknown]

NARRATIVE: CASE EVENT DATE: 20150804
